FAERS Safety Report 4681523-7 (Version None)
Quarter: 2005Q2

REPORT INFORMATION
  Report Type: 
  Country: None (occurrence: None)
  Receive Date: 20050602
  Receipt Date: 20050517
  Transmission Date: 20051028
  Serious: Yes (Other)
  Sender: FDA-Public Use
  Company Number: FACT0500311

PATIENT

DRUGS (1)
  1. FACTIVE (GEMIFLOXACIN MESYLATE) TABLET 320 MG [Suspect]
     Indication: RESPIRATORY TRACT INFECTION BACTERIAL

REACTIONS (1)
  - MENINGITIS [None]
